FAERS Safety Report 9511131 (Version 51)
Quarter: 2019Q3

REPORT INFORMATION
  Report Type: Report from Study
  Country: CA (occurrence: CA)
  Receive Date: 20130910
  Receipt Date: 20190905
  Transmission Date: 20191005
  Serious: Yes (Hospitalization, Other)
  Sender: FDA-Public Use
  Company Number: CA-ROCHE-1125463

PATIENT
  Age: 50 Year
  Sex: Male
  Weight: 103.9 kg

DRUGS (34)
  1. PREDNISONE. [Concomitant]
     Active Substance: PREDNISONE
     Route: 065
  2. CLONAZEPAM. [Concomitant]
     Active Substance: CLONAZEPAM
     Dosage: 8-9 MONTHS AGO
     Route: 065
  3. CODEINE [Concomitant]
     Active Substance: CODEINE
     Dosage: 1-4 TABLETS
     Route: 065
  4. LIPITOR [Concomitant]
     Active Substance: ATORVASTATIN CALCIUM
     Route: 065
  5. DILTIAZEM. [Suspect]
     Active Substance: DILTIAZEM
     Indication: PRODUCT USED FOR UNKNOWN INDICATION
     Route: 065
  6. PREDNISONE. [Concomitant]
     Active Substance: PREDNISONE
     Route: 065
  7. ZOPICLONE [Concomitant]
     Active Substance: ZOPICLONE
  8. RITUXAN [Suspect]
     Active Substance: RITUXIMAB
     Indication: RHEUMATOID ARTHRITIS
     Dosage: FREQUENCY: DAY 1 + 15
     Route: 042
     Dates: start: 20120110, end: 20130918
  9. RITUXAN [Suspect]
     Active Substance: RITUXIMAB
     Route: 042
     Dates: start: 20120925, end: 20130918
  10. ACTEMRA [Suspect]
     Active Substance: TOCILIZUMAB
     Indication: RHEUMATOID ARTHRITIS
     Route: 042
     Dates: start: 20140502
  11. PREDNISONE. [Concomitant]
     Active Substance: PREDNISONE
     Route: 065
  12. METHOTREXATE. [Concomitant]
     Active Substance: METHOTREXATE
  13. TYLENOL [Concomitant]
     Active Substance: ACETAMINOPHEN
     Route: 048
     Dates: start: 20150811
  14. ATORVASTATIN [Concomitant]
     Active Substance: ATORVASTATIN
  15. PLAQUENIL [Concomitant]
     Active Substance: HYDROXYCHLOROQUINE SULFATE
  16. SYMBICORT [Concomitant]
     Active Substance: BUDESONIDE\FORMOTEROL FUMARATE DIHYDRATE
     Route: 065
  17. BENADRYL [Concomitant]
     Active Substance: DIPHENHYDRAMINE HYDROCHLORIDE
     Route: 048
     Dates: start: 20150217, end: 20150217
  18. DIMENHYDRINATE. [Concomitant]
     Active Substance: DIMENHYDRINATE
     Route: 048
     Dates: start: 20160303, end: 20160401
  19. TRAMADOL. [Suspect]
     Active Substance: TRAMADOL
     Indication: PAIN
     Route: 065
  20. PANTOLOC [PANTOPRAZOLE] [Concomitant]
     Active Substance: PANTOPRAZOLE SODIUM
     Dosage: 8-9 MONTHS AGO
     Route: 065
  21. LIPITOR [Concomitant]
     Active Substance: ATORVASTATIN CALCIUM
     Route: 065
  22. HYDROCORTISONE. [Suspect]
     Active Substance: HYDROCORTISONE
     Indication: PRODUCT USED FOR UNKNOWN INDICATION
     Route: 042
     Dates: start: 2015
  23. METHYLPREDNISOLONE. [Concomitant]
     Active Substance: METHYLPREDNISOLONE
     Indication: PREMEDICATION
     Route: 042
     Dates: start: 20120110, end: 20130918
  24. MORPHINE [Suspect]
     Active Substance: MORPHINE
     Indication: PRODUCT USED FOR UNKNOWN INDICATION
     Route: 065
  25. FOLIC ACID. [Concomitant]
     Active Substance: FOLIC ACID
  26. FLOMAX [Concomitant]
     Active Substance: TAMSULOSIN HYDROCHLORIDE
  27. DIPHENHYDRAMINE HCL [Concomitant]
     Active Substance: DIPHENHYDRAMINE HYDROCHLORIDE
     Indication: PREMEDICATION
     Route: 048
     Dates: start: 20120110, end: 20130918
  28. HYDROXYCHLOROQUINE [Concomitant]
     Active Substance: HYDROXYCHLOROQUINE
     Route: 065
  29. ACTEMRA [Suspect]
     Active Substance: TOCILIZUMAB
     Dosage: LAST INFUSION RECEIVED ON FEB/2015
     Route: 042
     Dates: start: 20150112
  30. TAMSULIN [Concomitant]
     Route: 065
  31. RAMIPRIL. [Concomitant]
     Active Substance: RAMIPRIL
     Route: 065
  32. ACETAMINOPHEN. [Concomitant]
     Active Substance: ACETAMINOPHEN
     Indication: PREMEDICATION
     Route: 048
     Dates: start: 20120110, end: 20130918
  33. TAMSULOSIN [Concomitant]
     Active Substance: TAMSULOSIN
     Route: 065
  34. CLONAZEPAM. [Concomitant]
     Active Substance: CLONAZEPAM
     Route: 065

REACTIONS (48)
  - Arthralgia [Not Recovered/Not Resolved]
  - Muscular weakness [Unknown]
  - Chest discomfort [Unknown]
  - Neoplasm malignant [Unknown]
  - Anxiety [Recovered/Resolved]
  - Palpitations [Recovered/Resolved]
  - Dizziness [Recovering/Resolving]
  - Sleep apnoea syndrome [Unknown]
  - Oedema peripheral [Not Recovered/Not Resolved]
  - Perineal infection [Unknown]
  - Arteriovenous fistula [Unknown]
  - Heart rate irregular [Unknown]
  - Benign prostatic hyperplasia [Not Recovered/Not Resolved]
  - Road traffic accident [Unknown]
  - Back pain [Not Recovered/Not Resolved]
  - Dizziness [Recovered/Resolved]
  - Nasopharyngitis [Recovered/Resolved]
  - Neuralgia [Unknown]
  - Blood pressure diastolic decreased [Unknown]
  - Intracranial aneurysm [Not Recovered/Not Resolved]
  - Weight increased [Unknown]
  - Optic nerve operation [Unknown]
  - Anal fistula [Recovered/Resolved]
  - Infusion related reaction [Recovered/Resolved]
  - Rheumatoid arthritis [Recovering/Resolving]
  - Drug ineffective [Unknown]
  - Hypoglycaemia [Recovered/Resolved]
  - Tendon pain [Unknown]
  - Infected dermal cyst [Unknown]
  - Anal haemorrhage [Unknown]
  - Umbilical hernia [Recovering/Resolving]
  - Dyspnoea [Recovered/Resolved]
  - Fall [Unknown]
  - Pallor [Unknown]
  - Nausea [Recovered/Resolved]
  - Rash [Not Recovered/Not Resolved]
  - Oxygen saturation decreased [Unknown]
  - Nausea [Recovering/Resolving]
  - Scrotal infection [Unknown]
  - Chronic obstructive pulmonary disease [Recovering/Resolving]
  - Weight decreased [Unknown]
  - Tooth injury [Unknown]
  - Oxygen saturation decreased [Unknown]
  - Contusion [Unknown]
  - Hypotension [Unknown]
  - Infection [Recovered/Resolved]
  - Rheumatoid arthritis [Unknown]
  - Dermal cyst [Unknown]

NARRATIVE: CASE EVENT DATE: 20120910
